FAERS Safety Report 19269204 (Version 1)
Quarter: 2021Q2

REPORT INFORMATION
  Report Type: Spontaneous
  Country: NO (occurrence: NO)
  Receive Date: 20210517
  Receipt Date: 20210517
  Transmission Date: 20210717
  Serious: Yes (Death, Hospitalization)
  Sender: FDA-Public Use
  Company Number: NO-PFIZER INC-2021506339

PATIENT
  Age: 45 Year
  Sex: Male

DRUGS (1)
  1. LORLATINIB [Suspect]
     Active Substance: LORLATINIB
     Indication: NON-SMALL CELL LUNG CANCER STAGE IV
     Dosage: 50 MG, DAILY
     Dates: start: 202002

REACTIONS (5)
  - Oedema peripheral [Unknown]
  - Scrotal oedema [Unknown]
  - Off label use [Unknown]
  - Respiratory arrest [Fatal]
  - Ascites [Unknown]

NARRATIVE: CASE EVENT DATE: 202009
